FAERS Safety Report 9508176 (Version 1)
Quarter: 2013Q3

REPORT INFORMATION
  Report Type: Spontaneous
  Country: CN (occurrence: CN)
  Receive Date: 20130909
  Receipt Date: 20130909
  Transmission Date: 20140515
  Serious: Yes (Hospitalization)
  Sender: FDA-Public Use
  Company Number: CN-SANOFI-AVENTIS-2013SA088203

PATIENT
  Age: 66 Year
  Sex: Male

DRUGS (3)
  1. RIFAMPICIN [Suspect]
     Indication: LEPROMATOUS LEPROSY
     Route: 065
     Dates: start: 200904
  2. ISONIAZID [Concomitant]
     Indication: LEPROMATOUS LEPROSY
     Dates: start: 200904
  3. DAPSONE [Concomitant]
     Indication: LEPROMATOUS LEPROSY
     Dates: start: 200904

REACTIONS (3)
  - Lepromatous leprosy [Recovering/Resolving]
  - Drug resistance [Unknown]
  - Treatment noncompliance [Unknown]
